FAERS Safety Report 23532690 (Version 5)
Quarter: 2024Q2

REPORT INFORMATION
  Report Type: Spontaneous
  Country: CA (occurrence: CA)
  Receive Date: 20240216
  Receipt Date: 20240506
  Transmission Date: 20240716
  Serious: Yes (Hospitalization, Other)
  Sender: FDA-Public Use
  Company Number: CA-PFIZER INC-202400042129

PATIENT
  Age: 47 Year
  Sex: Female

DRUGS (10)
  1. ADALIMUMAB [Suspect]
     Active Substance: ADALIMUMAB\ISOPROPYL ALCOHOL
     Dosage: 40 MG, EVERY 2 WEEKS
     Route: 058
     Dates: start: 202302
  2. AMLODIPINE [Concomitant]
     Active Substance: AMLODIPINE BESYLATE
     Dosage: 10 MG, DAILY
  3. ESCITALOPRAM [Concomitant]
     Active Substance: ESCITALOPRAM OXALATE
     Dosage: UNK
  4. EMPAGLIFLOZIN [Concomitant]
     Active Substance: EMPAGLIFLOZIN
     Dosage: 25 MG, DAILY
  5. FOLIC ACID [Concomitant]
     Active Substance: FOLIC ACID
     Dosage: UNK
  6. METHOTREXATE [Concomitant]
     Active Substance: METHOTREXATE
     Dosage: 25 MG, WEEKLY
     Route: 058
     Dates: start: 202101
  7. METFORMIN [Concomitant]
     Active Substance: METFORMIN HYDROCHLORIDE
     Dosage: 500 MG, DAILY
  8. MYLAN CITALOPRAM [Concomitant]
     Dosage: UNK
  9. PANTOPRAZOLE [Concomitant]
     Active Substance: PANTOPRAZOLE
     Dosage: 40 MG, 2X/DAY
  10. ROSUVASTATIN [Concomitant]
     Active Substance: ROSUVASTATIN
     Dosage: UNK

REACTIONS (28)
  - Swelling face [Unknown]
  - Facial paresis [Unknown]
  - Facial pain [Unknown]
  - Oropharyngeal pain [Unknown]
  - Dysphagia [Unknown]
  - Hypoaesthesia [Unknown]
  - Dysuria [Unknown]
  - Eye pain [Unknown]
  - Asthenia [Unknown]
  - Haematochezia [Unknown]
  - Macroglossia [Unknown]
  - Drug ineffective [Unknown]
  - C-reactive protein increased [Not Recovered/Not Resolved]
  - Prothrombin level increased [Not Recovered/Not Resolved]
  - Calcium ionised decreased [Unknown]
  - Blood parathyroid hormone increased [Unknown]
  - Vitamin D decreased [Unknown]
  - Herpes simplex [Unknown]
  - Osteoarthritis [Unknown]
  - Hepatic steatosis [Unknown]
  - Abdominal pain [Unknown]
  - Diarrhoea [Unknown]
  - Blood immunoglobulin G decreased [Unknown]
  - Blood immunoglobulin M decreased [Unknown]
  - Musculoskeletal chest pain [Unknown]
  - Arthralgia [Unknown]
  - Romberg test positive [Unknown]
  - Ataxia [Unknown]

NARRATIVE: CASE EVENT DATE: 20230101
